FAERS Safety Report 5322554-3 (Version None)
Quarter: 2007Q2

REPORT INFORMATION
  Report Type: 
  Country: None (occurrence: None)
  Receive Date: 20070511
  Receipt Date: 20070504
  Transmission Date: 20071010
  Serious: Yes (Other)
  Sender: FDA-Public Use
  Company Number: PHEH2007US06963

PATIENT
  Sex: Male

DRUGS (1)
  1. ZELNORM [Suspect]
     Indication: CONSTIPATION
     Dosage: 6 MG, BID
     Route: 048
     Dates: start: 20070201, end: 20070401

REACTIONS (4)
  - DIARRHOEA [None]
  - DIZZINESS [None]
  - DYSPNOEA [None]
  - HEART RATE INCREASED [None]
